FAERS Safety Report 25359467 (Version 5)
Quarter: 2025Q4

REPORT INFORMATION
  Report Type: Spontaneous
  Country: EU (occurrence: EU)
  Receive Date: 20250526
  Receipt Date: 20251224
  Transmission Date: 20260117
  Serious: Yes (Other)
  Sender: JOHNSON AND JOHNSON
  Company Number: EU-JNJFOC-20250509400

PATIENT
  Age: 71 Year
  Sex: Female
  Weight: 70 kg

DRUGS (5)
  1. RYBREVANT [Suspect]
     Active Substance: AMIVANTAMAB-VMJW
     Indication: Non-small cell lung cancer metastatic
     Dosage: LAST INFUSION ON 14-APR-2025
  2. RYBREVANT [Suspect]
     Active Substance: AMIVANTAMAB-VMJW
     Dosage: LAST INFUSION ON 02-JUN-2025, PERMANENT CESSATION OF TREATMENT: 05-DEC-2025
  3. CARBOPLATIN [Suspect]
     Active Substance: CARBOPLATIN
     Indication: Non-small cell lung cancer metastatic
  4. PEMETREXED [Suspect]
     Active Substance: PEMETREXED
     Indication: Non-small cell lung cancer metastatic
  5. OSIMERTINIB [Concomitant]
     Active Substance: OSIMERTINIB
     Indication: Product used for unknown indication

REACTIONS (10)
  - Deep vein thrombosis [Unknown]
  - Haematotoxicity [Unknown]
  - Renal failure [Unknown]
  - Thrombocytopenia [Unknown]
  - Rash [Unknown]
  - Dermatitis acneiform [Recovering/Resolving]
  - Nausea [Not Recovered/Not Resolved]
  - Oedema peripheral [Unknown]
  - Superficial vein thrombosis [Unknown]
  - Inappropriate schedule of product administration [Unknown]

NARRATIVE: CASE EVENT DATE: 20250324
